FAERS Safety Report 8335836-8 (Version None)
Quarter: 2012Q2

REPORT INFORMATION
  Report Type: 
  Country: None (occurrence: None)
  Receive Date: 20120501
  Receipt Date: 20120501
  Transmission Date: 20120825
  Serious: Yes (Hospitalization)
  Sender: FDA-Public Use
  Company Number: None

PATIENT
  Sex: Male

DRUGS (1)
  1. ZYTIGA [Suspect]
     Indication: PROSTATE CANCER
     Dosage: 250MGX4=1000MG DAILY PO ON EMPTY STOMACH
     Route: 048
     Dates: start: 20120402, end: 20120405

REACTIONS (2)
  - CHEST DISCOMFORT [None]
  - TACHYCARDIA [None]
